FAERS Safety Report 5365863-4 (Version None)
Quarter: 2007Q2

REPORT INFORMATION
  Report Type: 
  Country: None (occurrence: None)
  Receive Date: 20070611
  Receipt Date: 20070213
  Transmission Date: 20071010
  Serious: Yes (Other)
  Sender: FDA-Public Use
  Company Number: USA-2007-0026481

PATIENT
  Age: 50 Year
  Sex: Male

DRUGS (1)
  1. OXYCODONE HCL [Suspect]
     Indication: MIGRAINE
     Dosage: ORAL
     Route: 048

REACTIONS (1)
  - DRUG DEPENDENCE [None]
